FAERS Safety Report 24377372 (Version 2)
Quarter: 2024Q4

REPORT INFORMATION
  Report Type: Spontaneous
  Country: US (occurrence: US)
  Receive Date: 20240930
  Receipt Date: 20241120
  Transmission Date: 20250115
  Serious: No
  Sender: BIOGEN
  Company Number: US-BIOGENIDEC-2013BI012276

PATIENT
  Age: 34 Year
  Sex: Female

DRUGS (1)
  1. TYSABRI [Suspect]
     Active Substance: NATALIZUMAB
     Indication: Multiple sclerosis
     Route: 050
     Dates: start: 20110621

REACTIONS (8)
  - Pain [Unknown]
  - Hypersomnia [Unknown]
  - Feeling abnormal [Unknown]
  - Emotional disorder [Unknown]
  - Balance disorder [Recovered/Resolved]
  - Memory impairment [Unknown]
  - Multiple sclerosis [Unknown]
  - Headache [Recovered/Resolved]

NARRATIVE: CASE EVENT DATE: 20130108
